FAERS Safety Report 4731066-7 (Version None)
Quarter: 2005Q3

REPORT INFORMATION
  Report Type: 
  Country: None (occurrence: None)
  Receive Date: 20050726
  Receipt Date: 20050210
  Transmission Date: 20060218
  Serious: Yes (Hospitalization)
  Sender: FDA-Public Use
  Company Number: 05FRA0056

PATIENT
  Age: 73 Year
  Sex: Female

DRUGS (6)
  1. AGGRASTAT [Suspect]
     Indication: ACUTE MYOCARDIAL INFARCTION
     Dosage: 169 ML/DAILY
     Dates: start: 20040929, end: 20040930
  2. ASPIRIN LYSINE (ACETYLSALICYLATE LYSINE) (75 MILLIGRAM, TABLETS) [Suspect]
     Indication: ACUTE MYOCARDIAL INFARCTION
     Dosage: 75 MG QD
     Dates: start: 20040929
  3. CLOPIDOGREL BISULFATE (CLOPIDOGREL SULFATE) (75 MILLIGRAM, TABLETS) [Suspect]
     Indication: ACUTE MYOCARDIAL INFARCTION
     Dosage: 75MG QD
     Dates: start: 20040929
  4. HEPARIN CALCIUM (HEPARIN CALCIUM) (INJECTION) [Suspect]
     Indication: ACUTE MYOCARDIAL INFARCTION
     Dosage: 240 MG/DAILY
     Dates: start: 20040929, end: 20040930
  5. HEPARIN CALCIUM (HEPARIN CALCIUM) (INJECTION) [Suspect]
     Indication: ACUTE MYOCARDIAL INFARCTION
     Dates: start: 20041001, end: 20041002
  6. ATENOLOL [Concomitant]

REACTIONS (2)
  - HAEMATOMA [None]
  - THROMBOCYTOPENIA [None]
